FAERS Safety Report 9392506 (Version 1)
Quarter: 2013Q3

REPORT INFORMATION
  Report Type: Spontaneous
  Country: US (occurrence: None)
  Receive Date: 20130708
  Receipt Date: 20130708
  Transmission Date: 20140515
  Serious: Yes (Hospitalization)
  Sender: FDA-Public Use
  Company Number: None

PATIENT
  Age: 45 Year
  Sex: Male
  Weight: 188 kg

DRUGS (1)
  1. SITAGLIPTAN [Suspect]
     Indication: DIABETES MELLITUS
     Dosage: ^YEARS^ PER PATIENT

REACTIONS (2)
  - Pancreatitis [None]
  - Hypertriglyceridaemia [None]
